FAERS Safety Report 7002280-5 (Version None)
Quarter: 2010Q3

REPORT INFORMATION
  Report Type: 
  Country: None (occurrence: None)
  Receive Date: 20100920
  Receipt Date: 20100603
  Transmission Date: 20110219
  Serious: No
  Sender: FDA-Public Use
  Company Number: US-ASTRAZENECA-2010SE25741

PATIENT
  Age: 49 Year
  Sex: Male

DRUGS (6)
  1. SEROQUEL [Suspect]
     Indication: SLEEP DISORDER
     Route: 048
  2. SEROQUEL [Suspect]
     Indication: BIPOLAR DISORDER
     Route: 048
  3. SEROQUEL [Suspect]
     Indication: AGITATION
     Route: 048
  4. AMBIEN [Concomitant]
  5. CLONAZEPAM [Concomitant]
  6. CYMBALTA [Concomitant]

REACTIONS (2)
  - DRUG RESISTANCE [None]
  - INSOMNIA [None]
